FAERS Safety Report 18793799 (Version 1)
Quarter: 2021Q1

REPORT INFORMATION
  Report Type: Spontaneous
  Country: US (occurrence: US)
  Receive Date: 20210127
  Receipt Date: 20210127
  Transmission Date: 20210419
  Serious: No
  Sender: FDA-Public Use
  Company Number: US-ALNYLAM PHARMACEUTICALS, INC.-ALN-2021-000165

PATIENT

DRUGS (1)
  1. ONPATTRO [Suspect]
     Active Substance: PATISIRAN SODIUM
     Indication: HEREDITARY NEUROPATHIC AMYLOIDOSIS
     Dosage: UNK
     Route: 042
     Dates: start: 20170322

REACTIONS (6)
  - Abdominal pain upper [Unknown]
  - Dizziness [Unknown]
  - Depression [Unknown]
  - Intentional dose omission [Unknown]
  - Nausea [Unknown]
  - Insurance issue [Unknown]
